FAERS Safety Report 14490160 (Version 2)
Quarter: 2018Q1

REPORT INFORMATION
  Report Type: Spontaneous
  Country: TR (occurrence: TR)
  Receive Date: 20180206
  Receipt Date: 20180209
  Transmission Date: 20180509
  Serious: Yes (Hospitalization, Other)
  Sender: FDA-Public Use
  Company Number: TR-IPSEN BIOPHARMACEUTICALS, INC.-2018-01993

PATIENT
  Age: 55 Year
  Sex: Female
  Weight: 84 kg

DRUGS (5)
  1. ECOPIRIN [Concomitant]
     Active Substance: ASPIRIN
  2. CHOLVAST [Concomitant]
  3. LEVOTIRON [Concomitant]
     Active Substance: LEVOTHYROXINE SODIUM
  4. DELIX [Concomitant]
     Active Substance: RAMIPRIL
  5. DYSPORT [Suspect]
     Active Substance: ABOBOTULINUMTOXINA
     Indication: MUSCLE SPASTICITY
     Dosage: 500 UNITS
     Route: 030
     Dates: start: 20180119, end: 20180119

REACTIONS (4)
  - Oropharyngeal pain [Unknown]
  - Throat irritation [Unknown]
  - Acute coronary syndrome [Unknown]
  - Botulism [Unknown]

NARRATIVE: CASE EVENT DATE: 201801
